FAERS Safety Report 8408543-0 (Version None)
Quarter: 2012Q2

REPORT INFORMATION
  Report Type: 
  Country: None (occurrence: None)
  Receive Date: 20120604
  Receipt Date: 20120529
  Transmission Date: 20120825
  Serious: No
  Sender: FDA-Public Use
  Company Number: US-PFIZER INC-2012129514

PATIENT
  Sex: Male
  Weight: 117.91 kg

DRUGS (2)
  1. SIMVASTATIN [Concomitant]
     Indication: BLOOD CHOLESTEROL INCREASED
     Dosage: UNK
  2. TOVIAZ [Suspect]
     Indication: HYPERTONIC BLADDER
     Dosage: 4 MG, ONCE DAILY
     Route: 048
     Dates: start: 20120516

REACTIONS (2)
  - DRUG INEFFECTIVE [None]
  - ASTHENIA [None]
